FAERS Safety Report 5384650-4 (Version None)
Quarter: 2007Q3

REPORT INFORMATION
  Report Type: 
  Country: None (occurrence: None)
  Receive Date: 20070711
  Receipt Date: 20070629
  Transmission Date: 20080115
  Serious: Yes (Hospitalization, Other)
  Sender: FDA-Public Use
  Company Number: AR-PFIZER INC-2007045568

PATIENT
  Age: 36 Year
  Sex: Female

DRUGS (5)
  1. SUTENT [Suspect]
     Indication: RENAL CELL CARCINOMA STAGE UNSPECIFIED
     Route: 048
  2. SUTENT [Suspect]
     Indication: METASTASES TO BONE
  3. SUTENT [Suspect]
     Indication: METASTASES TO LUNG
  4. OMEPRAZOLE [Concomitant]
     Route: 048
  5. ALPLAX [Concomitant]
     Route: 048

REACTIONS (6)
  - CONVULSION [None]
  - HYPOTENSION [None]
  - INTESTINAL HAEMORRHAGE [None]
  - MOUTH HAEMORRHAGE [None]
  - MOUTH ULCERATION [None]
  - VAGINAL HAEMORRHAGE [None]
